FAERS Safety Report 7823531-0 (Version None)
Quarter: 2011Q4

REPORT INFORMATION
  Report Type: 
  Country: None (occurrence: None)
  Receive Date: 20111014
  Receipt Date: 20111010
  Transmission Date: 20120403
  Serious: Yes (Death)
  Sender: FDA-Public Use
  Company Number: 201111314

PATIENT
  Age: 69 Year
  Sex: Male

DRUGS (1)
  1. LIORESAL [Suspect]
     Indication: MUSCLE SPASTICITY
     Dosage: 99.87 MCG, DAILY, INTRATHECAL
     Route: 037

REACTIONS (2)
  - PRE-EXISTING DISEASE [None]
  - CONDITION AGGRAVATED [None]
